FAERS Safety Report 14007441 (Version 2)
Quarter: 2017Q4

REPORT INFORMATION
  Report Type: Report from Study
  Country: AU (occurrence: AU)
  Receive Date: 20170925
  Receipt Date: 20171026
  Transmission Date: 20180321
  Serious: Yes (Death)
  Sender: FDA-Public Use
  Company Number: PHHY2017AU140129

PATIENT
  Sex: Male

DRUGS (1)
  1. SANDOSTATIN LAR DEPOT [Suspect]
     Active Substance: OCTREOTIDE ACETATE
     Indication: NEUROENDOCRINE TUMOUR
     Dosage: 30 MG, QMO (SINGLE INJECTION EVERY 4 WEEKS)
     Route: 030

REACTIONS (4)
  - Myeloproliferative neoplasm [Fatal]
  - Bone marrow failure [Fatal]
  - Second primary malignancy [Fatal]
  - Myelodysplastic syndrome [Fatal]
